FAERS Safety Report 16598906 (Version 3)
Quarter: 2019Q3

REPORT INFORMATION
  Report Type: Spontaneous
  Country: CA (occurrence: CA)
  Receive Date: 20190719
  Receipt Date: 20190822
  Transmission Date: 20191004
  Serious: Yes (Death, Hospitalization)
  Sender: FDA-Public Use
  Company Number: CA-PFIZER INC-2019181419

PATIENT
  Age: 62 Year
  Sex: Male

DRUGS (1)
  1. SUTENT [Suspect]
     Active Substance: SUNITINIB MALATE
     Indication: METASTATIC RENAL CELL CARCINOMA
     Dosage: 50 MG, CYCLIC (2 WEEKS ON, 1 WEEK OFF)
     Route: 048
     Dates: start: 20190507, end: 20190612

REACTIONS (2)
  - Peripheral ischaemia [Fatal]
  - Peripheral artery thrombosis [Unknown]

NARRATIVE: CASE EVENT DATE: 2019
